FAERS Safety Report 7713538-6 (Version None)
Quarter: 2011Q3

REPORT INFORMATION
  Report Type: 
  Country: None (occurrence: None)
  Receive Date: 20110826
  Receipt Date: 20110822
  Transmission Date: 20111222
  Serious: Yes (Disabling, Other)
  Sender: FDA-Public Use
  Company Number: US-PFIZER INC-2011145104

PATIENT
  Sex: Female

DRUGS (3)
  1. SULFAMETHOXAZOLE AND TRIMETHOPRIM DOUBLE STRENGTH [Concomitant]
     Indication: BLOOD CHOLESTEROL INCREASED
     Dosage: UNK
     Dates: start: 20060421
  2. ATENOLOL [Concomitant]
     Indication: HYPERTENSION
     Dosage: UNK
     Dates: start: 20010220
  3. CHANTIX [Suspect]
     Indication: SMOKING CESSATION THERAPY
     Dosage: 1 MG, UNK
     Dates: start: 20080116, end: 20080416

REACTIONS (13)
  - DEPRESSION [None]
  - LOSS OF CONSCIOUSNESS [None]
  - AGGRESSION [None]
  - ANXIETY [None]
  - EMOTIONAL DISORDER [None]
  - SLEEP DISORDER [None]
  - PAIN [None]
  - MENTAL DISORDER [None]
  - MOOD SWINGS [None]
  - POST-TRAUMATIC STRESS DISORDER [None]
  - EMOTIONAL DISTRESS [None]
  - ABNORMAL DREAMS [None]
  - ABNORMAL BEHAVIOUR [None]
